FAERS Safety Report 25595605 (Version 1)
Quarter: 2025Q3

REPORT INFORMATION
  Report Type: Report from Study
  Country: EU (occurrence: EU)
  Receive Date: 20250723
  Receipt Date: 20250723
  Transmission Date: 20251020
  Serious: Yes (Hospitalization)
  Sender: AMGEN
  Company Number: EU-AMGEN-DEUNI2025143677

PATIENT
  Age: 73 Year

DRUGS (2)
  1. BEVACIZUMAB [Suspect]
     Active Substance: BEVACIZUMAB
     Indication: Neoplasm malignant
     Dosage: UNK, Q3WK/ ON 13-MAR-2025, THE PATIENT RECEIVED THE MOST RECENT DOSE (660 MG) OF BEVAZIZUMAB PRIOR T
     Route: 040
     Dates: start: 20241127
  2. OLAPARIB [Suspect]
     Active Substance: OLAPARIB
     Indication: Neoplasm malignant
     Dosage: UNK, BID/ON 20-MAR-2025, THE PATIENT RECEIVED THE MOST RECENT DOSE (150 MG) OF OLAPARIB PRIOR TO AE/
     Route: 048
     Dates: start: 20241127

REACTIONS (1)
  - Anaemia [Recovered/Resolved]

NARRATIVE: CASE EVENT DATE: 20250320
